FAERS Safety Report 17370840 (Version 1)
Quarter: 2020Q1

REPORT INFORMATION
  Report Type: Spontaneous
  Country: US (occurrence: US)
  Receive Date: 20200205
  Receipt Date: 20200205
  Transmission Date: 20200409
  Serious: No
  Sender: FDA-Public Use
  Company Number: US-AUROBINDO-AUR-APL-2019-095260

PATIENT
  Age: 52 Year
  Sex: Female
  Weight: 54 kg

DRUGS (2)
  1. RANITIDINE 300 MG CAPSULES [Suspect]
     Active Substance: RANITIDINE
     Indication: OROPHARYNGEAL PAIN
     Dosage: 2 DOSAGE FORM, DAILY
     Route: 065
  2. RANITIDINE 300 MG CAPSULES [Suspect]
     Active Substance: RANITIDINE
     Indication: NASOPHARYNGITIS

REACTIONS (6)
  - Hypersensitivity [Unknown]
  - Weight decreased [Unknown]
  - Swelling face [Unknown]
  - Abdominal discomfort [Unknown]
  - Product use in unapproved indication [Unknown]
  - Pain [Unknown]
